FAERS Safety Report 8314388-2 (Version None)
Quarter: 2012Q2

REPORT INFORMATION
  Report Type: 
  Country: None (occurrence: None)
  Receive Date: 20120426
  Receipt Date: 20120416
  Transmission Date: 20120825
  Serious: Yes (Death)
  Sender: FDA-Public Use
  Company Number: IT-CELGENEUS-083-21880-12041598

PATIENT

DRUGS (3)
  1. REVLIMID [Suspect]
     Indication: LYMPHOMA
     Dosage: 25 MILLIGRAM
     Route: 048
     Dates: start: 20081230, end: 20090120
  2. RITUXIMAB [Concomitant]
     Indication: LYMPHOMA
     Route: 065
  3. REVLIMID [Suspect]
     Dosage: 15 MILLIGRAM
     Route: 048
     Dates: start: 20090204, end: 20090914

REACTIONS (11)
  - NEUTROPENIA [None]
  - CHILLS [None]
  - ASTHENIA [None]
  - LYMPHOPENIA [None]
  - MUSCLE SPASMS [None]
  - BACK PAIN [None]
  - NIGHT SWEATS [None]
  - WHITE BLOOD CELL COUNT DECREASED [None]
  - DEATH [None]
  - PLATELET COUNT DECREASED [None]
  - PYREXIA [None]
